FAERS Safety Report 20077339 (Version 1)
Quarter: 2021Q4

REPORT INFORMATION
  Report Type: Spontaneous
  Country: US (occurrence: US)
  Receive Date: 20211116
  Receipt Date: 20211116
  Transmission Date: 20220303
  Serious: Yes (Hospitalization)
  Sender: FDA-Public Use
  Company Number: US-ELI_LILLY_AND_COMPANY-US202111003988

PATIENT
  Age: 63 Year
  Sex: Male

DRUGS (1)
  1. PEMETREXED [Suspect]
     Active Substance: PEMETREXED
     Indication: Product used for unknown indication
     Dosage: UNK, UNKNOWN
     Route: 065

REACTIONS (7)
  - Blood pressure decreased [Unknown]
  - Acute kidney injury [Recovered/Resolved]
  - Neutropenia [Unknown]
  - Skin exfoliation [Recovered/Resolved]
  - Mucosal inflammation [Recovered/Resolved]
  - Odynophagia [Recovered/Resolved]
  - Platelet count decreased [Unknown]
